FAERS Safety Report 25707131 (Version 1)
Quarter: 2025Q3

REPORT INFORMATION
  Report Type: Spontaneous
  Country: CA (occurrence: CA)
  Receive Date: 20250820
  Receipt Date: 20250820
  Transmission Date: 20251021
  Serious: Yes (Other)
  Sender: NOVARTIS
  Company Number: CA-002147023-NVSC2025CA126800

PATIENT
  Age: 36 Year
  Sex: Male

DRUGS (8)
  1. ADALIMUMAB [Suspect]
     Active Substance: ADALIMUMAB
     Indication: Melkersson-Rosenthal syndrome
     Route: 058
     Dates: start: 20220427
  2. ADALIMUMAB [Suspect]
     Active Substance: ADALIMUMAB
     Route: 058
     Dates: start: 20250408
  3. ADALIMUMAB [Suspect]
     Active Substance: ADALIMUMAB
     Route: 058
     Dates: start: 20250422
  4. ADALIMUMAB [Suspect]
     Active Substance: ADALIMUMAB
     Route: 058
     Dates: start: 2025
  5. TOBREX [Suspect]
     Active Substance: TOBRAMYCIN
     Indication: Product used for unknown indication
     Route: 065
  6. MAXIDEX [Suspect]
     Active Substance: DEXAMETHASONE
     Indication: Product used for unknown indication
     Dosage: UNK, TID
     Route: 065
  7. AMOXICILLIN [Suspect]
     Active Substance: AMOXICILLIN
     Indication: Product used for unknown indication
     Route: 065
  8. RUPATADINE [Suspect]
     Active Substance: RUPATADINE
     Indication: Product used for unknown indication
     Route: 065

REACTIONS (34)
  - Myelitis [Unknown]
  - Guillain-Barre syndrome [Unknown]
  - Swelling of eyelid [Not Recovered/Not Resolved]
  - Autoimmune disorder [Unknown]
  - Visual acuity reduced [Not Recovered/Not Resolved]
  - Photosensitivity reaction [Not Recovered/Not Resolved]
  - Hypersensitivity [Not Recovered/Not Resolved]
  - Keratitis [Not Recovered/Not Resolved]
  - Injection site discomfort [Unknown]
  - Hypoaesthesia [Recovered/Resolved]
  - Sensory loss [Not Recovered/Not Resolved]
  - Musculoskeletal stiffness [Unknown]
  - Asthenia [Unknown]
  - Movement disorder [Unknown]
  - Loss of proprioception [Unknown]
  - Cough [Unknown]
  - Sputum increased [Unknown]
  - Increased upper airway secretion [Unknown]
  - Influenza [Not Recovered/Not Resolved]
  - Paraesthesia [Unknown]
  - Infection [Unknown]
  - Pain [Not Recovered/Not Resolved]
  - Granuloma [Not Recovered/Not Resolved]
  - Product communication issue [Unknown]
  - Multiple use of single-use product [Unknown]
  - Device difficult to use [Unknown]
  - Wrong technique in device usage process [Unknown]
  - Drug effective for unapproved indication [Unknown]
  - Vision blurred [Not Recovered/Not Resolved]
  - General physical health deterioration [Unknown]
  - Ill-defined disorder [Not Recovered/Not Resolved]
  - Decreased immune responsiveness [Unknown]
  - Malaise [Unknown]
  - Off label use [Unknown]

NARRATIVE: CASE EVENT DATE: 20220427
